FAERS Safety Report 12235906 (Version 3)
Quarter: 2016Q2

REPORT INFORMATION
  Report Type: Report from Study
  Country: US (occurrence: US)
  Receive Date: 20160404
  Receipt Date: 20160518
  Transmission Date: 20160815
  Serious: Yes (Other)
  Sender: FDA-Public Use
  Company Number: US-ACTELION-A-NJ2016-133800

PATIENT
  Age: 70 Year
  Sex: Female

DRUGS (3)
  1. MACITENTAN [Suspect]
     Active Substance: MACITENTAN
     Indication: PULMONARY ARTERIAL HYPERTENSION
     Dosage: 10 MG, QD
     Route: 048
     Dates: start: 20150827
  2. WARFARIN [Concomitant]
     Active Substance: WARFARIN
  3. AMLODIPINE [Concomitant]
     Active Substance: AMLODIPINE BESYLATE

REACTIONS (4)
  - Cardiac disorder [Unknown]
  - Cardiac valve disease [Unknown]
  - Pulmonary thrombosis [Unknown]
  - Medical procedure [Unknown]

NARRATIVE: CASE EVENT DATE: 20160415
